FAERS Safety Report 6391346-9 (Version None)
Quarter: 2009Q4

REPORT INFORMATION
  Report Type: 
  Country: None (occurrence: None)
  Receive Date: 20091007
  Receipt Date: 20090929
  Transmission Date: 20100525
  Serious: Yes (Death)
  Sender: FDA-Public Use
  Company Number: BE-CELGENEUS-013-21880-09100241

PATIENT
  Sex: Male
  Weight: 65 kg

DRUGS (3)
  1. REVLIMID [Suspect]
     Indication: PLASMACYTOMA
     Route: 048
     Dates: start: 20090504
  2. ADRIAMYCIN PFS [Concomitant]
     Indication: PLASMACYTOMA
  3. DEXAMETHASONE 0.5MG TAB [Concomitant]
     Indication: PLASMACYTOMA

REACTIONS (1)
  - MULTIPLE MYELOMA [None]
